FAERS Safety Report 15959331 (Version 1)
Quarter: 2019Q1

REPORT INFORMATION
  Report Type: Spontaneous
  Country: DK (occurrence: DK)
  Receive Date: 20190214
  Receipt Date: 20190214
  Transmission Date: 20190417
  Serious: Yes (Disabling)
  Sender: FDA-Public Use
  Company Number: DK-TEVA-2019-DK-1009417

PATIENT
  Age: 50 Year
  Sex: Female

DRUGS (10)
  1. CITALOPRAM [Concomitant]
     Active Substance: CITALOPRAM HYDROBROMIDE
     Indication: DEPRESSION
     Dosage: 20 MILLIGRAM DAILY;
     Route: 048
     Dates: start: 20160111
  2. MULTIVITAMIN MINERAL [Concomitant]
     Indication: VITAMIN SUPPLEMENTATION
     Dosage: 1 DOSAGE FORMS DAILY;
     Route: 048
     Dates: start: 20171114
  3. ZOLPIDEM [Concomitant]
     Active Substance: ZOLPIDEM\ZOLPIDEM TARTRATE
     Indication: INSOMNIA
     Dosage: 5 MILLIGRAM DAILY;
     Route: 048
     Dates: start: 20171101
  4. SODIUM PICOSULFATE [Concomitant]
     Active Substance: SODIUM PICOSULFATE
     Indication: CONSTIPATION
     Dosage: DOSE: 10 DROPS IN THE EVENING
     Route: 048
     Dates: start: 20180928
  5. OXAPAX [Concomitant]
     Active Substance: OXAZEPAM
     Indication: SEDATIVE THERAPY
     Dosage: 30 MILLIGRAM DAILY;
     Route: 048
     Dates: start: 20181018
  6. FERROUS TARTRATE [Concomitant]
     Active Substance: FERROUS TARTRATE
     Indication: IRON DEFICIENCY
     Dosage: 2 DOSAGE FORMS DAILY;
     Route: 048
     Dates: start: 20171114
  7. MACROGOL 3350 [Concomitant]
     Active Substance: POLYETHYLENE GLYCOL 3350
     Indication: CONSTIPATION
     Dosage: 1 DOSAGE FORMS DAILY;
     Route: 048
     Dates: start: 20170522
  8. PARACETAMOL [Concomitant]
     Active Substance: ACETAMINOPHEN
     Indication: PAIN
     Dosage: 1995 MILLIGRAM DAILY;
     Route: 048
     Dates: start: 20171023
  9. BETOLVEX [Suspect]
     Active Substance: CYANOCOBALAMIN
     Indication: VITAMIN B12 DEFICIENCY
     Dosage: 1 MILLIGRAM DAILY;
     Route: 048
     Dates: start: 201705, end: 201812
  10. SERTRALINE [Concomitant]
     Active Substance: SERTRALINE HYDROCHLORIDE
     Indication: DEPRESSION
     Dosage: 12.5 MILLIGRAM DAILY;
     Route: 048
     Dates: start: 20161121

REACTIONS (6)
  - Somnolence [Recovered/Resolved]
  - Diplopia [Recovered/Resolved]
  - Nausea [Recovered/Resolved]
  - Akathisia [Recovered/Resolved]
  - Vomiting [Recovered/Resolved]
  - Hyperacusis [Recovered/Resolved]

NARRATIVE: CASE EVENT DATE: 201712
